FAERS Safety Report 11858088 (Version 1)
Quarter: 2015Q4

REPORT INFORMATION
  Report Type: Spontaneous
  Country: JP (occurrence: JP)
  Receive Date: 20151222
  Receipt Date: 20151222
  Transmission Date: 20160305
  Serious: Yes (Hospitalization)
  Sender: FDA-Public Use
  Company Number: JP-SA-2015SA213442

PATIENT
  Age: 70 Year
  Sex: Female
  Weight: 52.5 kg

DRUGS (6)
  1. PLAVIX [Suspect]
     Active Substance: CLOPIDOGREL BISULFATE
     Indication: MYOCARDIAL INFARCTION
     Route: 048
     Dates: start: 20150120, end: 20150906
  2. CRESTOR [Suspect]
     Active Substance: ROSUVASTATIN CALCIUM
     Route: 048
     Dates: start: 20150120, end: 20150906
  3. BAYASPIRIN [Suspect]
     Active Substance: ASPIRIN
     Route: 048
     Dates: start: 20150820
  4. LANSOPRAZOLE. [Suspect]
     Active Substance: LANSOPRAZOLE
     Route: 048
     Dates: start: 20150120, end: 20150906
  5. CARVEDILOL. [Suspect]
     Active Substance: CARVEDILOL
     Route: 048
     Dates: start: 20150120, end: 20150906
  6. MICARDIS [Concomitant]
     Active Substance: TELMISARTAN
     Dosage: 40 MG
     Dates: end: 20150906

REACTIONS (3)
  - Lymphocyte count decreased [Recovered/Resolved]
  - Rash [Recovered/Resolved]
  - Liver disorder [Recovered/Resolved]

NARRATIVE: CASE EVENT DATE: 20150904
